FAERS Safety Report 15705404 (Version 7)
Quarter: 2019Q1

REPORT INFORMATION
  Report Type: Report from Study
  Country: US (occurrence: US)
  Receive Date: 20181210
  Receipt Date: 20190325
  Transmission Date: 20190417
  Serious: Yes (Other)
  Sender: FDA-Public Use
  Company Number: US-PFIZER INC-2018491239

PATIENT
  Age: 64 Year
  Sex: Female

DRUGS (5)
  1. IBRANCE [Suspect]
     Active Substance: PALBOCICLIB
     Dosage: 125 MG, CYCLIC (DAILY/DOSING - 21 DAYS ON/7 DAYS OFF)
     Route: 048
     Dates: start: 20181101
  2. IBRANCE [Suspect]
     Active Substance: PALBOCICLIB
     Dosage: 125 MG, CYCLIC (DAILY FOR 21 DAYS OF 28 DAY CYCLE)
     Route: 048
     Dates: start: 20181101, end: 20181204
  3. IBRANCE [Suspect]
     Active Substance: PALBOCICLIB
     Dosage: 125 MG, CYCLIC (21 DAYS ON/7 DAYS OFF)
     Route: 048
     Dates: end: 20181203
  4. IBRANCE [Suspect]
     Active Substance: PALBOCICLIB
     Indication: BREAST CANCER METASTATIC
     Dosage: 125 MG, 1X/DAY
     Route: 048
     Dates: start: 20181031
  5. FASLODEX [Concomitant]
     Active Substance: FULVESTRANT
     Dosage: UNK

REACTIONS (21)
  - Nasal congestion [Recovering/Resolving]
  - Product dose omission [Unknown]
  - Dysphonia [Recovering/Resolving]
  - Respiratory tract infection [Recovered/Resolved]
  - Cough [Recovering/Resolving]
  - Paraesthesia [Unknown]
  - Urinary tract infection [Unknown]
  - Nasopharyngitis [Recovering/Resolving]
  - Upper respiratory tract congestion [Unknown]
  - Feeling hot [Unknown]
  - Sleep disorder [Unknown]
  - Rhinorrhoea [Unknown]
  - Fatigue [Recovering/Resolving]
  - Bone marrow failure [Unknown]
  - Hypersomnia [Unknown]
  - Hot flush [Not Recovered/Not Resolved]
  - Head discomfort [Unknown]
  - White blood cell count decreased [Unknown]
  - Hyperhidrosis [Unknown]
  - Nausea [Unknown]
  - Diarrhoea [Unknown]

NARRATIVE: CASE EVENT DATE: 2018
